FAERS Safety Report 6963306-8 (Version None)
Quarter: 2010Q3

REPORT INFORMATION
  Report Type: 
  Country: None (occurrence: None)
  Receive Date: 20100902
  Receipt Date: 20100819
  Transmission Date: 20110219
  Serious: Yes (Other)
  Sender: FDA-Public Use
  Company Number: JP-JNJFOC-20100807362

PATIENT
  Age: 58 Year
  Sex: Male

DRUGS (2)
  1. DUROTEP MT [Suspect]
     Indication: PAIN
     Route: 062
  2. MORPHINE HYDROCHLORIDE [Suspect]
     Indication: PAIN
     Route: 042

REACTIONS (3)
  - DELIRIUM [None]
  - DEPRESSIVE SYMPTOM [None]
  - DRUG EFFECT DECREASED [None]
